FAERS Safety Report 6977322-3 (Version None)
Quarter: 2010Q3

REPORT INFORMATION
  Report Type: 
  Country: None (occurrence: None)
  Receive Date: 20100910
  Receipt Date: 20100810
  Transmission Date: 20110219
  Serious: Yes (Other)
  Sender: FDA-Public Use
  Company Number: PHHY2010DE52480

PATIENT
  Age: 77 Year
  Sex: Female

DRUGS (10)
  1. AREDIA [Suspect]
     Dosage: 60 MG, PER MONTH
  2. GLEEVEC [Concomitant]
     Indication: CHRONIC MYELOID LEUKAEMIA
     Dosage: 400 MG, QD
     Route: 048
  3. AROMASIN [Concomitant]
     Dosage: 25 MG, QD
  4. LOPRESSOR [Concomitant]
     Dosage: 50 MG, QD
  5. NORVASC [Concomitant]
     Dosage: 5 MG, QD
  6. TORASEMIDE [Concomitant]
     Dosage: 5 MG, QD
  7. GLIMEPIRIDE [Concomitant]
     Dosage: 1 MG, QD
  8. ASPIRIN [Concomitant]
     Dosage: 100 MG, QD
  9. INSUMAN [Concomitant]
     Dosage: 30 UNITS IN THE MORNING
  10. INSUMAN [Concomitant]
     Dosage: 10 UNITS IN THE EVENING

REACTIONS (7)
  - ABSCESS JAW [None]
  - NEUROLYSIS [None]
  - OEDEMA MUCOSAL [None]
  - OSTEONECROSIS [None]
  - OSTEONECROSIS OF JAW [None]
  - TOOTH EXTRACTION [None]
  - ULCER [None]
